FAERS Safety Report 17068250 (Version 1)
Quarter: 2019Q4

REPORT INFORMATION
  Report Type: Spontaneous
  Country: US (occurrence: US)
  Receive Date: 20191123
  Receipt Date: 20191123
  Transmission Date: 20200122
  Serious: No
  Sender: FDA-Public Use
  Company Number: NVSC2019US044964

PATIENT
  Age: 60 Year
  Sex: Female

DRUGS (1)
  1. TAFINLAR COMBO (DABRAFENIB\TRAMETINIB) [Suspect]
     Active Substance: DABRAFENIB\TRAMETINIB
     Indication: MALIGNANT MELANOMA
     Dosage: UNK
     Route: 048

REACTIONS (1)
  - Diarrhoea [Recovering/Resolving]
